FAERS Safety Report 8773463 (Version 3)
Quarter: 2013Q1

REPORT INFORMATION
  Report Type: Report from Study
  Country: US (occurrence: US)
  Receive Date: 20120907
  Receipt Date: 20130207
  Transmission Date: 20140127
  Serious: Yes (Hospitalization, Other)
  Sender: FDA-Public Use
  Company Number: US-BAYER-2012-092573

PATIENT
  Age: 40 Year
  Sex: Male

DRUGS (3)
  1. BETASERON [Suspect]
     Indication: RELAPSING-REMITTING MULTIPLE SCLEROSIS
     Dosage: 4 MIU, QOD
     Route: 058
     Dates: start: 20120814, end: 2012
  2. BETASERON [Suspect]
     Indication: RELAPSING-REMITTING MULTIPLE SCLEROSIS
     Dosage: 0.25 MG, QOD
     Route: 058
     Dates: start: 20120829
  3. NAPROXEN SODIUM ({= 220 MG) [Suspect]
     Indication: PREMEDICATION
     Dosage: 200 MG, UNK
     Dates: start: 201208, end: 201209

REACTIONS (5)
  - Gastric ulcer [Recovering/Resolving]
  - Abdominal pain [Recovering/Resolving]
  - Multiple sclerosis relapse [None]
  - Hemiparesis [None]
  - Hypoaesthesia [None]
